FAERS Safety Report 14066210 (Version 7)
Quarter: 2018Q1

REPORT INFORMATION
  Report Type: Report from Study
  Country: US (occurrence: US)
  Receive Date: 20171010
  Receipt Date: 20180126
  Transmission Date: 20180508
  Serious: Yes (Hospitalization, Other)
  Sender: FDA-Public Use
  Company Number: US-GILEAD-2017-0298285

PATIENT
  Age: 60 Year
  Sex: Male

DRUGS (3)
  1. COUMADIN [Concomitant]
     Active Substance: WARFARIN SODIUM
  2. AMBRISENTAN [Suspect]
     Active Substance: AMBRISENTAN
     Indication: PRODUCT USED FOR UNKNOWN INDICATION
     Dosage: 10 MG, UNK
     Route: 065
     Dates: start: 20120522
  3. LIPITOR [Concomitant]
     Active Substance: ATORVASTATIN CALCIUM

REACTIONS (14)
  - Dysarthria [Unknown]
  - Unevaluable event [Unknown]
  - Blood pressure diastolic increased [Unknown]
  - Scar [Unknown]
  - Treatment noncompliance [Not Recovered/Not Resolved]
  - Head injury [Unknown]
  - Intentional product misuse [Not Recovered/Not Resolved]
  - Irritability [Unknown]
  - Cardiac disorder [Unknown]
  - Seizure [Unknown]
  - Fall [Unknown]
  - Nervous system disorder [Unknown]
  - Road traffic accident [Unknown]
  - Malaise [Unknown]
